FAERS Safety Report 4565727-X (Version None)
Quarter: 2005Q1

REPORT INFORMATION
  Report Type: 
  Country: None (occurrence: None)
  Receive Date: 20050126
  Receipt Date: 20050107
  Transmission Date: 20050727
  Serious: Yes (Death, Other)
  Sender: FDA-Public Use
  Company Number: USA050187856

PATIENT
  Age: 41 Year
  Sex: Male

DRUGS (5)
  1. CIALIS [Suspect]
     Dosage: 10 MG
     Dates: start: 20041201
  2. SINGULAIR (MONTELUKAST) [Concomitant]
  3. FLOVENT [Concomitant]
  4. SERVANT [Concomitant]
  5. FLONASE [Concomitant]

REACTIONS (2)
  - CARDIO-RESPIRATORY ARREST [None]
  - HYPERSENSITIVITY [None]
